FAERS Safety Report 9197472 (Version 1)
Quarter: 2013Q1

REPORT INFORMATION
  Report Type: Spontaneous
  Country: US (occurrence: None)
  Receive Date: 20120709
  Receipt Date: 20120709
  Transmission Date: 20140127
  Serious: Yes (Other)
  Sender: FDA-Public Use
  Company Number: PHHY2011US41485

PATIENT
  Sex: Female

DRUGS (5)
  1. GLEEVEC (IMATINIB) [Suspect]
     Indication: CHRONIC MYELOID LEUKAEMIA
     Route: 048
     Dates: start: 20110425
  2. ADVAIR DISKUS (FLUTICASONE PROPIONATE, SALMETEROL XINAFOATE) [Concomitant]
  3. LISINOPRIL (LISINOPRIL) [Concomitant]
  4. MEVACOR (LOVASTATIN) [Concomitant]
  5. AMLODIPINE BESYLATE (AMLODIPINE BESILATE) [Concomitant]

REACTIONS (5)
  - Rash [None]
  - Blood pressure diastolic decreased [None]
  - Swelling [None]
  - Rash macular [None]
  - Pruritus [None]
